FAERS Safety Report 8275935-2 (Version None)
Quarter: 2012Q2

REPORT INFORMATION
  Report Type: 
  Country: None (occurrence: None)
  Receive Date: 20120412
  Receipt Date: 20120409
  Transmission Date: 20120825
  Serious: No
  Sender: FDA-Public Use
  Company Number: US-PFIZER INC-2012088548

PATIENT
  Sex: Male
  Weight: 72.562 kg

DRUGS (1)
  1. NICOTROL [Suspect]
     Indication: SMOKING CESSATION THERAPY
     Dosage: UNK,AS NEEDED
     Route: 045
     Dates: start: 20120229, end: 20120408

REACTIONS (6)
  - NASAL OEDEMA [None]
  - DYSPNOEA [None]
  - RHINORRHOEA [None]
  - RHINALGIA [None]
  - EPISTAXIS [None]
  - NASAL DISCOMFORT [None]
